FAERS Safety Report 19728201 (Version 1)
Quarter: 2021Q3

REPORT INFORMATION
  Report Type: Spontaneous
  Country: FR (occurrence: FR)
  Receive Date: 20210820
  Receipt Date: 20210820
  Transmission Date: 20211014
  Serious: Yes (Life-Threatening)
  Sender: FDA-Public Use
  Company Number: FR-TEVA-2021-FR-1942508

PATIENT
  Age: 53 Year
  Sex: Female

DRUGS (9)
  1. SIMVASTATINE [Concomitant]
     Active Substance: SIMVASTATIN
  2. LEVOTHYROX 75 MICROGRAMMES, COMPRIME SECABLE [Concomitant]
     Active Substance: LEVOTHYROXINE SODIUM
     Dosage: SCORED TABLET
  3. SUFENTANIL [Concomitant]
     Active Substance: SUFENTANIL
  4. MIVACURIUM [Concomitant]
     Active Substance: MIVACURIUM
  5. CHLORHYDRATE DE VANCOMYCINE [Suspect]
     Active Substance: VANCOMYCIN HYDROCHLORIDE
     Indication: ANAESTHESIA PROCEDURE
     Dosage: 1200MG
     Route: 041
     Dates: start: 20180816, end: 20180816
  6. KETAMINE [Concomitant]
     Active Substance: KETAMINE
  7. PROPOFOL. [Concomitant]
     Active Substance: PROPOFOL
  8. PANTOPRAZOLE [Concomitant]
     Active Substance: PANTOPRAZOLE
  9. CHLORHYDRATE D^EPHEDRINE [Concomitant]

REACTIONS (1)
  - Anaphylactic shock [Recovered/Resolved]

NARRATIVE: CASE EVENT DATE: 20180816
